FAERS Safety Report 8016839-X (Version None)
Quarter: 2012Q1

REPORT INFORMATION
  Report Type: 
  Country: None (occurrence: None)
  Receive Date: 20120102
  Receipt Date: 20111220
  Transmission Date: 20120608
  Serious: Yes (Other)
  Sender: FDA-Public Use
  Company Number: FR-NOVOPROD-341762

PATIENT

DRUGS (8)
  1. SPIRIVA [Concomitant]
     Indication: RESPIRATORY FAILURE
  2. ACARBOSE [Concomitant]
     Dosage: 2 PILLS
     Route: 048
  3. VICTOZA [Suspect]
     Indication: DIABETES MELLITUS
     Dosage: 1.2 MG, QD
     Route: 058
     Dates: start: 20110208, end: 20110510
  4. ZOLPIDEM [Concomitant]
  5. GLUCOVANCE [Concomitant]
     Dosage: 1000MG-5MG
     Route: 048
  6. ASPIRIN [Concomitant]
     Dosage: 75MG
     Route: 048
  7. ZOCOR [Concomitant]
     Dosage: 20MG
     Route: 048
  8. FLUTICASONE PROPIONATE/SALMETEROL [Concomitant]
     Dosage: INHALATION
     Route: 055

REACTIONS (1)
  - ORTHOSTATIC HYPOTENSION [None]
